FAERS Safety Report 14924930 (Version 2)
Quarter: 2018Q2

REPORT INFORMATION
  Report Type: Spontaneous
  Country: US (occurrence: US)
  Receive Date: 20180522
  Receipt Date: 20180525
  Transmission Date: 20180711
  Serious: Yes (Hospitalization, Other)
  Sender: FDA-Public Use
  Company Number: US-PFIZER INC-2018206983

PATIENT
  Age: 57 Year
  Sex: Female
  Weight: 63.5 kg

DRUGS (4)
  1. EFFEXOR [Suspect]
     Active Substance: VENLAFAXINE HYDROCHLORIDE
     Indication: DEPRESSION
     Dosage: 75MG TABLETS-1 TABLET TAKEN BY MOUTH DAILY AT BEDTIME
     Route: 048
     Dates: start: 20180313, end: 20180319
  2. SYNTHROID [Concomitant]
     Active Substance: LEVOTHYROXINE SODIUM
     Indication: THYROID DISORDER
     Dosage: 125 UG, DAILY
  3. CITALOPRAM [Concomitant]
     Active Substance: CITALOPRAM HYDROBROMIDE
     Indication: DEPRESSION
     Dosage: UNK
  4. SYNTHROID [Concomitant]
     Active Substance: LEVOTHYROXINE SODIUM
     Dosage: 100 UG, UNK

REACTIONS (17)
  - Tachycardia [Unknown]
  - Urinary tract infection [Recovered/Resolved]
  - Oesophageal disorder [Unknown]
  - Vision blurred [Recovered/Resolved]
  - Constipation [Unknown]
  - Vomiting [Unknown]
  - Incontinence [Recovered/Resolved]
  - Gingival discomfort [Recovering/Resolving]
  - Dry eye [Recovered/Resolved]
  - Polyp [Unknown]
  - Condition aggravated [Not Recovered/Not Resolved]
  - Dry skin [Recovered/Resolved]
  - Feeling abnormal [Unknown]
  - Confusional state [Recovered/Resolved]
  - Depression [Not Recovered/Not Resolved]
  - Eye swelling [Recovered/Resolved]
  - Peptic ulcer [Unknown]

NARRATIVE: CASE EVENT DATE: 20180313
